FAERS Safety Report 8428134-5 (Version None)
Quarter: 2012Q2

REPORT INFORMATION
  Report Type: 
  Country: None (occurrence: None)
  Receive Date: 20120611
  Receipt Date: 20120531
  Transmission Date: 20120825
  Serious: Yes (Hospitalization, Other)
  Sender: FDA-Public Use
  Company Number: US-ASTRAZENECA-2012SE37428

PATIENT
  Age: 14 Year
  Sex: Male
  Weight: 60.5 kg

DRUGS (8)
  1. PRILOSEC [Suspect]
     Route: 048
  2. INFLIXINAB [Suspect]
     Indication: CROHN'S DISEASE
     Dosage: 10 MG/KG EVERY SIX WEEKS
     Route: 042
     Dates: start: 20100917
  3. ANTIBIOTICS [Concomitant]
     Indication: INFLAMMATORY BOWEL DISEASE
  4. INFLIXINAB [Suspect]
     Dosage: 10 MG/KG EVERY SIX WEEKS
     Route: 042
     Dates: start: 20110919
  5. PRILOSEC OTC [Suspect]
     Route: 048
  6. PREDNISONE TAB [Suspect]
  7. MESALAMINE [Concomitant]
     Route: 048
  8. PROTONIX [Suspect]

REACTIONS (7)
  - HAEMATOCHEZIA [None]
  - NAUSEA [None]
  - CROHN'S DISEASE [None]
  - FREQUENT BOWEL MOVEMENTS [None]
  - ABDOMINAL PAIN [None]
  - CLOSTRIDIAL INFECTION [None]
  - RECTAL HAEMORRHAGE [None]
